FAERS Safety Report 10376902 (Version 2)
Quarter: 2014Q3

REPORT INFORMATION
  Report Type: Spontaneous
  Country: US (occurrence: US)
  Receive Date: 20140811
  Receipt Date: 20140912
  Transmission Date: 20150326
  Serious: No
  Sender: FDA-Public Use
  Company Number: US-009507513-1408USA003779

PATIENT
  Sex: Female
  Weight: 76.64 kg

DRUGS (1)
  1. IMPLANON [Suspect]
     Active Substance: ETONOGESTREL
     Dosage: 2 DFAT THE SAME TIME (DATE UNSPECIFIED)
     Route: 059

REACTIONS (2)
  - Overdose [Unknown]
  - No adverse event [Unknown]
